FAERS Safety Report 6964465-3 (Version None)
Quarter: 2010Q3

REPORT INFORMATION
  Report Type: 
  Country: None (occurrence: None)
  Receive Date: 20100903
  Receipt Date: 20100823
  Transmission Date: 20110219
  Serious: Yes (Other)
  Sender: FDA-Public Use
  Company Number: DE-PFIZER INC-2010105859

PATIENT
  Age: 63 Year
  Sex: Female

DRUGS (1)
  1. AROMASIN [Suspect]
     Dosage: UNK
     Route: 048
     Dates: start: 20081101

REACTIONS (2)
  - CARPAL TUNNEL SYNDROME [None]
  - HEPATIC ENZYME INCREASED [None]
